FAERS Safety Report 7524551-6 (Version None)
Quarter: 2011Q2

REPORT INFORMATION
  Report Type: 
  Country: None (occurrence: None)
  Receive Date: 20110606
  Receipt Date: 20110128
  Transmission Date: 20111010
  Serious: Yes (Life-Threatening, Hospitalization, Disabling)
  Sender: FDA-Public Use
  Company Number: US-BAYER-200937025NA

PATIENT
  Age: 45 Year
  Sex: Female
  Weight: 77 kg

DRUGS (57)
  1. YASMIN [Suspect]
     Indication: ACNE
  2. LEVOXYL [Concomitant]
     Indication: GOITRE
  3. ANTIBIOTICS [Concomitant]
  4. EFFEXOR XR [Concomitant]
     Indication: PAIN
  5. PROTONIX [Concomitant]
     Indication: BACK PAIN
     Dosage: PHARMACY RECORDS: DEC-2008
     Route: 065
     Dates: start: 20081208
  6. MELOXICAM [Concomitant]
  7. AMITIZA [Concomitant]
     Indication: IRRITABLE BOWEL SYNDROME
     Dosage: PHARMACY RECORDS: DEC-2008
     Route: 065
     Dates: start: 20081205
  8. DURAGESIC-100 [Concomitant]
     Indication: PAIN
     Route: 065
  9. BACTRIM [Concomitant]
     Indication: URINARY TRACT INFECTION
     Route: 065
  10. ACETAMINOPHEN AND HYDROCODONE BITARTRATE [Concomitant]
     Indication: PAIN
  11. AMBIEN [Concomitant]
     Route: 065
  12. SERTRALINE HYDROCHLORIDE [Concomitant]
     Dosage: PHARMACY RECORDS: JAN-2009
     Route: 065
  13. PROPOXYPHENE HYDROCHLORIDE [Concomitant]
     Dosage: PHARMACY RECORDS: DEC-2008
     Route: 065
     Dates: start: 20081219
  14. XANAX [Concomitant]
     Indication: INITIAL INSOMNIA
     Dosage: ??-DEC-2008
     Route: 065
     Dates: start: 20000101
  15. PROTONIX [Concomitant]
     Indication: GASTRITIS
  16. CYCLOBENZAPRINE [Concomitant]
     Indication: BACK PAIN
     Dates: start: 20081120
  17. LORAZEPAM [Concomitant]
     Indication: ANXIETY
  18. COLACE [Concomitant]
     Indication: CONSTIPATION PROPHYLAXIS
     Route: 065
  19. FLEXERIL [Concomitant]
     Dosage: PHARMACY RECORDS: DEC-2008
     Route: 065
  20. CITALOPRAM HYDROBROMIDE [Concomitant]
     Indication: HEADACHE
     Route: 065
  21. YAZ [Suspect]
     Indication: OVARIAN CYST
  22. EFFEXOR XR [Concomitant]
     Indication: DEPRESSION
  23. CITALOPRAM HYDROBROMIDE [Concomitant]
     Indication: CONTRACEPTION
  24. PENICILLIN VK [Concomitant]
     Route: 065
  25. EFFEXOR XR [Concomitant]
     Indication: PREMENSTRUAL SYNDROME
     Dosage: PHARMACY RECORDS: DEC-2008. OTHER INDICATION: ANXIETY.
     Route: 065
     Dates: start: 20000101
  26. XANAX [Concomitant]
     Indication: ANXIETY
  27. PENICILLIN V POTASSIUM [Concomitant]
     Indication: PHARYNGITIS STREPTOCOCCAL
     Route: 065
  28. MOBIC [Concomitant]
     Dosage: PHARMACY RECORDS: DEC-2008
     Route: 065
  29. GOLYTELY [MACROGOL,KCL,NA BICARB,NACL,NA+ SULF] [Concomitant]
  30. SYNTHROID [Concomitant]
     Indication: THYROID DISORDER
     Dosage: USED LEVOKYL OR SYNTHROID
     Route: 065
     Dates: start: 19920101, end: 20100101
  31. ADVIL [Concomitant]
     Dates: start: 19990101, end: 20080101
  32. SPIRONOLACTONE [Concomitant]
     Indication: UNEVALUABLE EVENT
     Route: 065
     Dates: start: 20040101
  33. BUPROPION HYDROCHLORIDE [Concomitant]
     Indication: INITIAL INSOMNIA
  34. ACETAMINOPHEN W/ PROPOXYPHENE HCL [Concomitant]
     Indication: PAIN
     Dosage: PHARMACY RECORDS: DEC-2008
     Route: 065
     Dates: start: 20081219
  35. DILAUDID [Concomitant]
     Indication: PAIN
     Route: 065
  36. PERCOCET [Concomitant]
     Indication: PAIN
     Route: 065
  37. MIRALAX [Concomitant]
     Indication: LAXATIVE SUPPORTIVE CARE
     Route: 065
  38. NASONEX [Concomitant]
     Dosage: PHARMACY RECORDS: 2007, DEC-2008
     Route: 065
  39. WELLBUTRIN [Concomitant]
     Dosage: PHARMACY RECORDS: DEC-2008
     Route: 065
  40. LEVOXYL [Concomitant]
     Indication: THYROID DISORDER
     Dosage: USED LEVOKYL OR SYNTHROID
     Route: 042
     Dates: start: 19920101, end: 20100101
  41. SYNTHROID [Concomitant]
     Indication: GOITRE
  42. SYNTHROID [Concomitant]
     Indication: HYPOTHYROIDISM
  43. WARFARIN SODIUM [Concomitant]
     Route: 065
     Dates: start: 20081227
  44. BUPROPION HYDROCHLORIDE [Concomitant]
     Indication: PREMENSTRUAL SYNDROME
     Dosage: PHARMACY RECORDS: DEC-2008
     Route: 065
     Dates: start: 20081205, end: 20081210
  45. WARFARIN SODIUM [Concomitant]
     Dosage: DOSING 3 MG DAILY EXCEPT THURSDAYS
     Route: 065
     Dates: start: 20090129
  46. SPIRONOLACTONE [Concomitant]
     Dosage: TWO TABLETS PER DAY
     Route: 065
     Dates: start: 20081109
  47. MELOXICAM [Concomitant]
     Indication: INTERVERTEBRAL DISC PROTRUSION
     Dosage: PHARMACY RECORDS: DEC-2008
     Route: 065
     Dates: start: 20081120
  48. ESOMEPRAZOLE MAGNESIUM [Concomitant]
     Route: 042
  49. ASPIRIN [Concomitant]
     Route: 065
  50. MERIDIA [Concomitant]
     Indication: WEIGHT DECREASED
     Dosage: 15 MG, QD
     Route: 065
     Dates: start: 20070301, end: 20090101
  51. ESOMEPRAZOLE MAGNESIUM [Concomitant]
     Route: 042
  52. YASMIN [Suspect]
     Indication: ORAL CONTRACEPTION
     Dosage: FROM 2001 OR 2002 UNTIL DEC-2008, ONE PILL DAILY. PHARMACY RECORDS: DEC-2008
     Dates: end: 20081201
  53. YASMIN [Suspect]
     Indication: PREMENSTRUAL SYNDROME
  54. RESTASIS [Concomitant]
     Indication: LACRIMAL DISORDER
     Route: 065
     Dates: start: 20080730
  55. ZOLOFT [Concomitant]
     Route: 065
  56. LEXAPRO [Concomitant]
     Dosage: PHARMACY RECORDS: DEC-2008
     Route: 065
  57. CELEBREX [Concomitant]

REACTIONS (32)
  - PAIN [None]
  - DEEP VEIN THROMBOSIS [None]
  - POST THROMBOTIC SYNDROME [None]
  - PELVIC HAEMATOMA [None]
  - AFFECTIVE DISORDER [None]
  - INAPPROPRIATE AFFECT [None]
  - SKIN ATROPHY [None]
  - PLATELET COUNT DECREASED [None]
  - PLEURAL EFFUSION [None]
  - VARICOSE VEIN [None]
  - THROMBOSIS [None]
  - AFFECT LABILITY [None]
  - AGITATION [None]
  - SKIN WARM [None]
  - POSTOPERATIVE ILEUS [None]
  - TENSION [None]
  - DEPRESSED MOOD [None]
  - PULMONARY EMBOLISM [None]
  - ANXIETY [None]
  - MOBILITY DECREASED [None]
  - TEARFULNESS [None]
  - CONVERSION DISORDER [None]
  - SKIN DISCOLOURATION [None]
  - SWELLING [None]
  - PAIN IN EXTREMITY [None]
  - SKIN TURGOR DECREASED [None]
  - DEHYDRATION [None]
  - IMPAIRED DRIVING ABILITY [None]
  - DISSEMINATED INTRAVASCULAR COAGULATION [None]
  - CONFUSIONAL STATE [None]
  - FEAR [None]
  - RETROPERITONEAL HAEMORRHAGE [None]
